FAERS Safety Report 7491006-7 (Version None)
Quarter: 2011Q2

REPORT INFORMATION
  Report Type: 
  Country: None (occurrence: None)
  Receive Date: 20110517
  Receipt Date: 20110517
  Transmission Date: 20111010
  Serious: Yes (Life-Threatening, Hospitalization)
  Sender: FDA-Public Use
  Company Number: None

PATIENT
  Age: 74 Year
  Sex: Male
  Weight: 77.1 kg

DRUGS (9)
  1. DRONEDARONE HCL [Concomitant]
  2. FUROSEMIDE [Concomitant]
  3. FLUTICASONE-SALMETEROL [Concomitant]
  4. DABIGATRAN 150MG BOEHRINGER INGELHEIM [Suspect]
     Indication: ATRIAL FIBRILLATION
     Dosage: 150MG BID PO
     Route: 048
     Dates: start: 20110503, end: 20110510
  5. ALISKIREN [Concomitant]
  6. ASPIRIN [Concomitant]
  7. SAXAGLIPTIN [Concomitant]
  8. LEVALBUTEROL HCL [Concomitant]
  9. PREDNISONE [Concomitant]

REACTIONS (12)
  - DIZZINESS [None]
  - INTERNATIONAL NORMALISED RATIO INCREASED [None]
  - GASTROINTESTINAL HAEMORRHAGE [None]
  - ACTIVATED PARTIAL THROMBOPLASTIN TIME PROLONGED [None]
  - DYSPNOEA EXERTIONAL [None]
  - DIVERTICULUM [None]
  - CHRONIC OBSTRUCTIVE PULMONARY DISEASE [None]
  - PAIN IN EXTREMITY [None]
  - BALANCE DISORDER [None]
  - HAEMOGLOBIN DECREASED [None]
  - DYSPNOEA [None]
  - FAECES DISCOLOURED [None]
